FAERS Safety Report 7834650-7 (Version None)
Quarter: 2011Q4

REPORT INFORMATION
  Report Type: 
  Country: None (occurrence: None)
  Receive Date: 20111024
  Receipt Date: 20111017
  Transmission Date: 20120403
  Serious: Yes (Death, Hospitalization, Other)
  Sender: FDA-Public Use
  Company Number: FR-AMGEN-FRASP2011005871

PATIENT
  Age: 71 Year
  Sex: Female

DRUGS (6)
  1. VECTIBIX [Suspect]
     Indication: COLORECTAL CANCER
     Dosage: UNK
     Dates: start: 20110104
  2. CAMPTOSAR [Concomitant]
  3. FOLFOX-4 [Concomitant]
  4. FOLFIRI [Concomitant]
  5. ARANESP [Concomitant]
     Indication: ANAEMIA
     Dosage: 300 MG, UNK
  6. VENOFER [Concomitant]
     Dosage: 200 MG, UNK
     Dates: start: 20110103

REACTIONS (13)
  - DRUG ADMINISTRATION ERROR [None]
  - ANAEMIA [None]
  - INFLAMMATION [None]
  - OXYGEN SUPPLEMENTATION [None]
  - ASCITES [None]
  - GENERAL PHYSICAL HEALTH DETERIORATION [None]
  - ORAL CANDIDIASIS [None]
  - OEDEMA PERIPHERAL [None]
  - LUNG DISORDER [None]
  - DEATH [None]
  - HAEMORRHAGE [None]
  - INFECTION [None]
  - MALNUTRITION [None]
